FAERS Safety Report 8481061 (Version 10)
Quarter: 2017Q4

REPORT INFORMATION
  Report Type: Spontaneous
  Country: US (occurrence: US)
  Receive Date: 20120328
  Receipt Date: 20171120
  Transmission Date: 20180321
  Serious: Yes (Hospitalization, Disabling, Other)
  Sender: FDA-Public Use
  Company Number: US-MERCK-1203USA03479

PATIENT
  Sex: Female
  Weight: 82.09 kg

DRUGS (14)
  1. FOSAMAX [Suspect]
     Active Substance: ALENDRONATE SODIUM
     Indication: OSTEOPOROSIS
     Dosage: 10 MG, QD
     Route: 048
     Dates: start: 1998, end: 200105
  2. FOSAMAX [Suspect]
     Active Substance: ALENDRONATE SODIUM
     Indication: OSTEOPOROSIS
     Dosage: 70 MG, UNK
     Route: 048
     Dates: start: 20060720, end: 20080102
  3. ALENDRONATE SODIUM. [Suspect]
     Active Substance: ALENDRONATE SODIUM
     Indication: OSTEOPOROSIS
     Dosage: 70 MG, UNK
     Route: 048
     Dates: start: 20080530
  4. ALENDRONATE SODIUM. [Suspect]
     Active Substance: ALENDRONATE SODIUM
     Indication: OSTEOPOROSIS
  5. ALENDRONATE SODIUM. [Suspect]
     Active Substance: ALENDRONATE SODIUM
     Indication: OSTEOPOROSIS
  6. GLYBURIDE. [Concomitant]
     Active Substance: GLYBURIDE
     Indication: TYPE 2 DIABETES MELLITUS
     Route: 065
  7. FOSAMAX [Suspect]
     Active Substance: ALENDRONATE SODIUM
     Indication: OSTEOPOROSIS
     Dosage: 35 MG, QW
     Route: 048
     Dates: start: 20050519, end: 20060411
  8. ALENDRONATE SODIUM. [Suspect]
     Active Substance: ALENDRONATE SODIUM
     Indication: OSTEOPENIA
  9. FOSAMAX [Suspect]
     Active Substance: ALENDRONATE SODIUM
     Indication: OSTEOPENIA
  10. CALTRATE WITH VITAMIN D [Concomitant]
     Active Substance: CALCIUM CARBONATE\CHOLECALCIFEROL
     Indication: OSTEOPENIA
     Dosage: 600 MG, BID
     Route: 065
  11. ALENDRONATE SODIUM. [Suspect]
     Active Substance: ALENDRONATE SODIUM
     Indication: OSTEOPENIA
     Dosage: 70 MG, UNK
     Route: 048
     Dates: start: 20080325, end: 20110513
  12. FOSAMAX [Suspect]
     Active Substance: ALENDRONATE SODIUM
     Indication: OSTEOPENIA
  13. ALENDRONATE SODIUM. [Suspect]
     Active Substance: ALENDRONATE SODIUM
     Indication: OSTEOPENIA
     Dosage: 70 MG, UNK
     Route: 048
     Dates: start: 20100830
  14. FOSAMAX [Suspect]
     Active Substance: ALENDRONATE SODIUM
     Indication: OSTEOPENIA

REACTIONS (61)
  - Spinal compression fracture [Unknown]
  - Low turnover osteopathy [Not Recovered/Not Resolved]
  - Abdominal hernia [Unknown]
  - Upper limb fracture [Unknown]
  - Fall [Unknown]
  - Neuropathy peripheral [Unknown]
  - Bronchitis chronic [Not Recovered/Not Resolved]
  - Dupuytren^s contracture [Unknown]
  - Renal failure [Unknown]
  - Carotid artery disease [Unknown]
  - Hyperlipidaemia [Unknown]
  - Syncope [Unknown]
  - Tendonitis [Unknown]
  - Anaemia [Recovering/Resolving]
  - Peripheral vascular disorder [Unknown]
  - Umbilical hernia [Unknown]
  - Fungal skin infection [Unknown]
  - Hyponatraemia [Recovered/Resolved]
  - Fall [Unknown]
  - Carotid endarterectomy [Unknown]
  - Fall [Unknown]
  - Skin ulcer [Unknown]
  - Diabetic neuropathy [Unknown]
  - Diabetes mellitus [Unknown]
  - Carotid artery stenosis [Unknown]
  - Internal fixation of fracture [Unknown]
  - Humerus fracture [Unknown]
  - Pain [Not Recovered/Not Resolved]
  - Blister [Unknown]
  - Blood potassium increased [Unknown]
  - Nodal arrhythmia [Unknown]
  - Abdominal distension [Unknown]
  - Cardiac failure congestive [Unknown]
  - Femur fracture [Unknown]
  - Adenoidectomy [Unknown]
  - Tonsillar disorder [Unknown]
  - Ankle fracture [Unknown]
  - Spinal osteoarthritis [Unknown]
  - Pulmonary calcification [Unknown]
  - Compression fracture [Unknown]
  - Ankle fracture [Unknown]
  - Femur fracture [Recovered/Resolved]
  - Hip fracture [Not Recovered/Not Resolved]
  - Femur fracture [Not Recovered/Not Resolved]
  - Open reduction of fracture [Unknown]
  - Fall [Unknown]
  - Umbilical hernia repair [Unknown]
  - Atrial fibrillation [Unknown]
  - Asthenia [Unknown]
  - Dyspepsia [Unknown]
  - Fall [Unknown]
  - Osteoporosis [Not Recovered/Not Resolved]
  - Stress fracture [Not Recovered/Not Resolved]
  - Arthropathy [Unknown]
  - Polyarthritis [Unknown]
  - Chronic obstructive pulmonary disease [Not Recovered/Not Resolved]
  - Pneumonia [Unknown]
  - Dementia [Unknown]
  - Constipation [Unknown]
  - Back pain [Unknown]
  - Osteoarthritis [Unknown]

NARRATIVE: CASE EVENT DATE: 19980304
